FAERS Safety Report 4746467-0 (Version None)
Quarter: 2005Q3

REPORT INFORMATION
  Report Type: 
  Country: None (occurrence: None)
  Receive Date: 20050817
  Receipt Date: 20050729
  Transmission Date: 20060218
  Serious: Yes (Hospitalization)
  Sender: FDA-Public Use
  Company Number: US-AMGEN-US144617

PATIENT
  Age: 50 Year
  Sex: Female
  Weight: 99 kg

DRUGS (10)
  1. SENSIPAR [Suspect]
     Indication: HYPERPARATHYROIDISM SECONDARY
     Route: 048
     Dates: start: 20050524, end: 20050802
  2. EPOGEN [Concomitant]
     Indication: DIALYSIS
     Dates: start: 20020101
  3. RENAGEL [Concomitant]
     Dates: start: 20050418
  4. KLONOPIN [Concomitant]
  5. NU-IRON [Concomitant]
  6. LAMICTAL [Concomitant]
     Dates: start: 20050418
  7. PROTONIX [Concomitant]
     Dates: start: 20050418
  8. HECTORAL [Concomitant]
     Dates: start: 20050506
  9. DIATX [Concomitant]
     Dates: start: 20050418
  10. KLOR-CON [Concomitant]
     Dates: start: 20050418

REACTIONS (7)
  - CONDITION AGGRAVATED [None]
  - INSOMNIA [None]
  - INTENTIONAL MISUSE [None]
  - OVERDOSE [None]
  - RENAL MASS [None]
  - RESTLESS LEGS SYNDROME [None]
  - SUICIDE ATTEMPT [None]
